FAERS Safety Report 11803925 (Version 1)
Quarter: 2015Q4

REPORT INFORMATION
  Report Type: Spontaneous
  Country: CN (occurrence: CN)
  Receive Date: 20151204
  Receipt Date: 20151204
  Transmission Date: 20160305
  Serious: Yes (Death)
  Sender: FDA-Public Use
  Company Number: CN-OTSUKA-2015_016095

PATIENT
  Age: 48 Year
  Sex: Male

DRUGS (1)
  1. DACOGEN [Suspect]
     Active Substance: DECITABINE
     Indication: MYELODYSPLASTIC SYNDROME
     Dosage: 34 MG, 1 IN 1 DAY
     Route: 042
     Dates: start: 20150723, end: 20150919

REACTIONS (1)
  - Death [Fatal]

NARRATIVE: CASE EVENT DATE: 20151110
